FAERS Safety Report 14668593 (Version 1)
Quarter: 2018Q1

REPORT INFORMATION
  Report Type: Spontaneous
  Country: IT (occurrence: IT)
  Receive Date: 20180322
  Receipt Date: 20180322
  Transmission Date: 20180509
  Serious: No
  Sender: FDA-Public Use
  Company Number: IT-ADIENNEP-2017AD000144

PATIENT
  Sex: Male
  Weight: 10 kg

DRUGS (18)
  1. TEPADINA [Suspect]
     Active Substance: THIOTEPA
     Indication: ALLOGENIC BONE MARROW TRANSPLANTATION THERAPY
     Dosage: 39.6 MG TOTAL
     Route: 042
     Dates: start: 20160312, end: 20160312
  2. FLUDARABINE [Suspect]
     Active Substance: FLUDARABINE PHOSPHATE
     Indication: ALLOGENIC BONE MARROW TRANSPLANTATION THERAPY
     Dosage: 23.5 MG DAILY
     Route: 042
     Dates: start: 20160313, end: 20160315
  3. BUSILVEX [Suspect]
     Active Substance: BUSULFAN
     Indication: ALLOGENIC BONE MARROW TRANSPLANTATION THERAPY
     Dosage: 47.52 MG DAILY
     Route: 042
     Dates: start: 20160312, end: 20160315
  4. ITRACONAZOLE. [Concomitant]
     Active Substance: ITRACONAZOLE
     Dosage: 100 MG
     Dates: start: 20160311, end: 20160422
  5. RANITIDINE. [Concomitant]
     Active Substance: RANITIDINE
     Dosage: 20 MG
     Dates: start: 20160311, end: 20160320
  6. ALOXI [Concomitant]
     Active Substance: PALONOSETRON HYDROCHLORIDE
     Dates: start: 20160312, end: 20160312
  7. DEURSIL [Concomitant]
     Active Substance: URSODIOL
     Dosage: 100 MG
     Dates: start: 20160311, end: 20160422
  8. HEPARIN [Concomitant]
     Active Substance: HEPARIN SODIUM
     Dosage: 1000 LU
     Dates: start: 20160311, end: 20160408
  9. ACICLOVIR [Concomitant]
     Active Substance: ACYCLOVIR
     Dosage: 300 MG
     Dates: start: 20160311, end: 20160316
  10. URBASON [Concomitant]
     Active Substance: METHYLPREDNISOLONE
     Dosage: 10 MG
     Dates: start: 20160313, end: 20160316
  11. TRIMETON [Concomitant]
     Active Substance: CHLORPHENIRAMINE MALEATE
     Dosage: 4 MG
     Dates: start: 20160313, end: 20160316
  12. DIAMINOCILLINA [Concomitant]
     Active Substance: PENICILLIN G BENZATHINE
     Dosage: 600000 LU
     Dates: start: 20160311, end: 20160311
  13. TEGRETOL [Concomitant]
     Active Substance: CARBAMAZEPINE
     Dosage: 100 MG
     Dates: start: 20160312, end: 20160316
  14. CREON [Concomitant]
     Active Substance: PANCRELIPASE AMYLASE\PANCRELIPASE LIPASE\PANCRELIPASE PROTEASE
     Dosage: 25000 LU
     Dates: start: 20160311, end: 20160320
  15. LASIX [Concomitant]
     Active Substance: FUROSEMIDE
     Dosage: 20 MG
     Dates: start: 20160311, end: 20160418
  16. ANTILYMPHOCYTE IMMUNOGLOBULIN (HORSE) [Suspect]
     Active Substance: EQUINE THYMOCYTE IMMUNE GLOBULIN
     Dosage: 24.75 MG DAILY
     Route: 042
     Dates: start: 20160313, end: 20160316
  17. CIPROXIN [Concomitant]
     Active Substance: CIPROFLOXACIN
     Dosage: 250 MG
     Dates: start: 20160311, end: 20160422
  18. MYCOSTATIN [Concomitant]
     Active Substance: NYSTATIN
     Dosage: 6 ML
     Route: 048
     Dates: start: 20160311, end: 20160422

REACTIONS (1)
  - Diarrhoea [Recovered/Resolved]
